FAERS Safety Report 6062478-X (Version None)
Quarter: 2009Q1

REPORT INFORMATION
  Report Type: 
  Country: None (occurrence: None)
  Receive Date: 20090202
  Receipt Date: 20090202
  Transmission Date: 20090719
  Serious: Yes (Other)
  Sender: FDA-Public Use
  Company Number: None

PATIENT
  Age: 41 Year
  Sex: Male
  Weight: 80.7403 kg

DRUGS (1)
  1. ADVAIR DISKUS 100/50 [Suspect]
     Indication: ASTHMA
     Dosage: 1 PUFF/DAY INHAL
     Route: 055
     Dates: start: 20081110, end: 20081120

REACTIONS (3)
  - HEART RATE INCREASED [None]
  - LARYNGITIS [None]
  - PALPITATIONS [None]
